FAERS Safety Report 16013814 (Version 7)
Quarter: 2019Q2

REPORT INFORMATION
  Report Type: Report from Study
  Country: AU (occurrence: AU)
  Receive Date: 20190227
  Receipt Date: 20190618
  Transmission Date: 20190711
  Serious: Yes (Life-Threatening, Hospitalization)
  Sender: FDA-Public Use
  Company Number: PHHO2019AU002257

PATIENT
  Age: 66 Year
  Sex: Male
  Weight: 73.4 kg

DRUGS (50)
  1. PARACETAMOL [Concomitant]
     Active Substance: ACETAMINOPHEN
     Indication: PAIN IN JAW
     Dosage: UNK
     Route: 065
     Dates: start: 20190214, end: 20190227
  2. GASTROGEL ANTACID [Concomitant]
     Indication: ABDOMINAL PAIN
     Dosage: UNK
     Route: 065
     Dates: start: 20190212, end: 20190213
  3. NORMAL SALINE [Concomitant]
     Active Substance: SODIUM CHLORIDE
     Indication: NEUTROPENIC COLITIS
     Dosage: UNK
     Route: 065
     Dates: start: 20190215, end: 20190218
  4. FENTANYL. [Concomitant]
     Active Substance: FENTANYL
     Indication: NEUTROPENIC COLITIS
     Dosage: UNK
     Route: 065
     Dates: start: 20190216, end: 20190217
  5. METOCLOPRAMIDE. [Concomitant]
     Active Substance: METOCLOPRAMIDE
     Dosage: UNK
     Route: 065
     Dates: start: 20190222, end: 20190225
  6. ALTEPLASE. [Concomitant]
     Active Substance: ALTEPLASE
     Indication: PRODUCT USED FOR UNKNOWN INDICATION
     Dosage: UNK
     Route: 065
     Dates: start: 20190220, end: 20190220
  7. AMILORIDE [Concomitant]
     Active Substance: AMILORIDE
     Indication: URINARY RETENTION
     Dosage: UNK
     Route: 065
     Dates: start: 20190224, end: 20190224
  8. ALLOPURINOL. [Concomitant]
     Active Substance: ALLOPURINOL
     Indication: PAIN PROPHYLAXIS
     Dosage: UNK
     Route: 065
     Dates: start: 20190204, end: 20190204
  9. ESOMEPRAZOLE. [Concomitant]
     Active Substance: ESOMEPRAZOLE MAGNESIUM
     Indication: GASTROOESOPHAGEAL REFLUX DISEASE
     Dosage: UNK
     Route: 065
     Dates: start: 20140101, end: 20190216
  10. MEROPENEM. [Concomitant]
     Active Substance: MEROPENEM
     Indication: NEUTROPENIC COLITIS
     Dosage: UNK
     Route: 065
     Dates: start: 20190215, end: 20190226
  11. MORPHINE [Concomitant]
     Active Substance: MORPHINE
     Indication: NEUTROPENIC COLITIS
     Dosage: UNK
     Route: 065
     Dates: start: 20190215, end: 20190215
  12. FILGRASTIM [Concomitant]
     Active Substance: FILGRASTIM
     Indication: NEUTROPENIC COLITIS
     Dosage: UNK
     Route: 065
     Dates: start: 20190218, end: 20190220
  13. THIAMIN [Concomitant]
     Active Substance: THIAMINE
     Indication: NEUTROPENIC COLITIS
     Dosage: UNK
     Route: 065
     Dates: start: 20190219, end: 20190220
  14. TELMISARTAN. [Concomitant]
     Active Substance: TELMISARTAN
     Indication: BLOOD PRESSURE MEASUREMENT
     Dosage: UNK
     Route: 065
     Dates: start: 20140101, end: 20190207
  15. DOXYCYCLINE. [Concomitant]
     Active Substance: DOXYCYCLINE
     Indication: LIMB INJURY
     Dosage: UNK
     Route: 065
  16. PANADOL [Concomitant]
     Active Substance: ACETAMINOPHEN
     Indication: BACK PAIN
     Dosage: UNK
     Route: 065
     Dates: start: 20180201
  17. DEXAMETHASONE. [Concomitant]
     Active Substance: DEXAMETHASONE
     Indication: PROPHYLAXIS OF NAUSEA AND VOMITING
     Dosage: UNK
     Route: 065
     Dates: start: 20190205, end: 20190213
  18. VALACICLOVIR [Concomitant]
     Active Substance: VALACYCLOVIR HYDROCHLORIDE
     Indication: PROPHYLAXIS
     Dosage: UNK
     Route: 065
     Dates: start: 20190206, end: 20190217
  19. POTASSIUM CHLORIDE. [Concomitant]
     Active Substance: POTASSIUM CHLORIDE
     Indication: PROPHYLAXIS
     Dosage: UNK
     Route: 065
     Dates: start: 20190218, end: 20190220
  20. ROSUVASTATIN. [Concomitant]
     Active Substance: ROSUVASTATIN
     Indication: BLOOD CHOLESTEROL INCREASED
     Dosage: UNK
     Route: 065
     Dates: start: 20140101, end: 20190215
  21. RESOURCE PROTEIN [Concomitant]
     Indication: NUTRITIONAL SUPPLEMENTATION
     Dosage: UNK
     Route: 065
     Dates: start: 20190218, end: 20190219
  22. METOCLOPRAMIDE. [Concomitant]
     Active Substance: METOCLOPRAMIDE
     Indication: PROPHYLAXIS OF NAUSEA AND VOMITING
     Dosage: UNK
     Route: 065
     Dates: start: 20190205, end: 20190211
  23. BUPRENORPHINE. [Concomitant]
     Active Substance: BUPRENORPHINE
     Indication: NEUTROPENIC COLITIS
     Dosage: UNK
     Route: 065
     Dates: start: 20190214, end: 20190215
  24. RESOURCE 2.0 [Concomitant]
     Indication: NUTRITIONAL SUPPLEMENTATION
     Dosage: UNK
     Route: 065
     Dates: start: 20190218, end: 20190219
  25. COMPOUND SODIUM LACTATE [Concomitant]
     Active Substance: CALCIUM CHLORIDE\POTASSIUM CHLORIDE\SODIUM CHLORIDE\SODIUM LACTATE
     Indication: ACUTE KIDNEY INJURY
     Dosage: UNK
     Route: 065
     Dates: start: 20190220, end: 20190220
  26. HEPARIN SODIUM. [Concomitant]
     Active Substance: HEPARIN SODIUM
     Indication: PROPHYLAXIS
     Dosage: UNK
     Route: 065
     Dates: start: 20190223, end: 20190223
  27. BUSCOPAN (HYOSCINE BUTYLBROMIDE) [Concomitant]
     Indication: NEUTROPENIC COLITIS
     Dosage: UNK
     Route: 065
     Dates: start: 20190214, end: 20190220
  28. PARACETAMOL [Concomitant]
     Active Substance: ACETAMINOPHEN
     Indication: BACK PAIN
     Dosage: UNK
     Route: 065
     Dates: start: 20180201, end: 20190204
  29. PARACETAMOL [Concomitant]
     Active Substance: ACETAMINOPHEN
     Indication: NEUTROPENIC COLITIS
  30. FUROSEMIDE. [Concomitant]
     Active Substance: FUROSEMIDE
     Indication: OEDEMA PERIPHERAL
     Dosage: UNK
     Route: 065
     Dates: start: 20190221, end: 20190221
  31. FUROSEMIDE. [Concomitant]
     Active Substance: FUROSEMIDE
     Dosage: UNK
     Route: 065
     Dates: start: 20190224, end: 20190224
  32. PANTOPRAZOLE [Concomitant]
     Active Substance: PANTOPRAZOLE
     Indication: NEUTROPENIC COLITIS
     Dosage: UNK
     Route: 065
     Dates: start: 20190216, end: 20190227
  33. COMPARATOR IDARUBICIN [Suspect]
     Active Substance: IDARUBICIN
     Indication: ACUTE MYELOID LEUKAEMIA
     Dosage: 22 MG, QD
     Route: 042
     Dates: start: 20190205
  34. TAZOCIN [Concomitant]
     Active Substance: PIPERACILLIN SODIUM\TAZOBACTAM SODIUM
     Indication: NEUTROPENIC COLITIS
     Dosage: UNK
     Route: 065
     Dates: start: 20190213, end: 20190215
  35. MAGNESIUM SULFATE. [Concomitant]
     Active Substance: MAGNESIUM SULFATE
     Indication: ACUTE KIDNEY INJURY
     Dosage: UNK
     Route: 065
     Dates: start: 20190220, end: 20190220
  36. RESOURCE PROTEIN [Concomitant]
     Dosage: UNK
     Route: 065
     Dates: start: 20190222, end: 20190225
  37. ANIDULAFUNGIN [Concomitant]
     Active Substance: ANIDULAFUNGIN
     Indication: NEUTROPENIC COLITIS
     Dosage: UNK
     Route: 065
     Dates: start: 20190220, end: 20190225
  38. COMPARATOR CYTARABINE [Suspect]
     Active Substance: CYTARABINE
     Indication: ACUTE MYELOID LEUKAEMIA
     Dosage: 370 MG, QD
     Route: 042
     Dates: start: 20190205
  39. CAPHOSOL [Concomitant]
     Active Substance: CALCIUM CHLORIDE\SODIUM CHLORIDE\SODIUM PHOSPHATE, DIBASIC, ANHYDROUS\SODIUM PHOSPHATE, MONOBASIC, ANHYDROUS
     Indication: PROPHYLAXIS
     Dosage: UNK
     Route: 065
     Dates: start: 20190205, end: 20190227
  40. VALACICLOVIR [Concomitant]
     Active Substance: VALACYCLOVIR HYDROCHLORIDE
     Dosage: UNK
     Route: 065
     Dates: start: 20190225, end: 20190305
  41. GASTROGEL [Concomitant]
     Active Substance: ALUMINUM HYDROXIDE\MAGNESIUM HYDROXIDE\MAGNESIUM TRISILICATE
     Indication: ABDOMINAL PAIN
     Dosage: UNK
     Route: 065
     Dates: start: 20190212, end: 20190213
  42. OLANZAPINE. [Concomitant]
     Active Substance: OLANZAPINE
     Indication: NEUTROPENIC COLITIS
     Dosage: UNK
     Route: 065
     Dates: start: 20190214, end: 20190218
  43. ACICLOVIR [Concomitant]
     Active Substance: ACYCLOVIR
     Indication: PROPHYLAXIS
     Dosage: UNK
     Route: 065
     Dates: start: 20190216, end: 20190225
  44. METHOXYFLURANE. [Concomitant]
     Active Substance: METHOXYFLURANE
     Indication: PAIN PROPHYLAXIS
     Dosage: UNK
     Route: 065
     Dates: start: 20190204, end: 20190204
  45. DOXYCYCLINE. [Concomitant]
     Active Substance: DOXYCYCLINE
     Indication: RASH
     Dosage: UNK
     Route: 065
     Dates: start: 20190203, end: 20190208
  46. CGP 41251 [Suspect]
     Active Substance: MIDOSTAURIN
     Indication: ACUTE MYELOID LEUKAEMIA
     Dosage: UNK
     Route: 048
     Dates: start: 20190212
  47. POTASSIUM CHLORIDE. [Concomitant]
     Active Substance: POTASSIUM CHLORIDE
     Indication: HYPOKALAEMIA
     Dosage: UNK
     Route: 065
     Dates: start: 20190220, end: 20190223
  48. POTASSIUM DIHYDROGEN PHOSPHATE [Concomitant]
     Active Substance: POTASSIUM PHOSPHATE, MONOBASIC
     Indication: HYPOPHOSPHATAEMIA
     Dosage: UNK
     Route: 065
     Dates: start: 20190219, end: 20190219
  49. SODIUM BICARBONATE. [Concomitant]
     Active Substance: SODIUM BICARBONATE
     Indication: METABOLIC ACIDOSIS
     Dosage: UNK
     Route: 065
     Dates: start: 20190221, end: 20190221
  50. OXYCODON [Concomitant]
     Active Substance: OXYCODONE
     Indication: NEUTROPENIC COLITIS
     Dosage: UNK
     Route: 065
     Dates: start: 20190218, end: 20190220

REACTIONS (1)
  - Neutropenic colitis [Recovered/Resolved]

NARRATIVE: CASE EVENT DATE: 20190220
